FAERS Safety Report 24668015 (Version 1)
Quarter: 2024Q4

REPORT INFORMATION
  Report Type: Spontaneous
  Country: CN (occurrence: CN)
  Receive Date: 20241127
  Receipt Date: 20241127
  Transmission Date: 20250115
  Serious: Yes (Other)
  Sender: ABBVIE
  Company Number: CN-PFIZER INC-PV202400148440

PATIENT
  Age: 29 Year
  Sex: Male
  Weight: 65 kg

DRUGS (3)
  1. AVIBACTAM SODIUM\CEFTAZIDIME [Suspect]
     Active Substance: AVIBACTAM SODIUM\CEFTAZIDIME
     Indication: Pneumonia
     Dosage: TIME INTERVAL: 0.33333333 DAYS: 2.5 G, 3X/DAY EVERY 8 HOURS
     Route: 041
     Dates: start: 20240418, end: 20240425
  2. LACOSAMIDE [Suspect]
     Active Substance: LACOSAMIDE
     Indication: Seizure prophylaxis
     Dosage: 0.1 G, 2X/DAY EVERY 12 HOURS
     Route: 041
     Dates: start: 20240407, end: 20240423
  3. COLISTIMETHATE SODIUM [Suspect]
     Active Substance: COLISTIMETHATE SODIUM
     Indication: Pneumonia
     Dosage: 150 MG, 2X/DAY EVERY 12 HOURS
     Route: 041
     Dates: start: 20240418, end: 20240425

REACTIONS (1)
  - Hepatic function abnormal [Recovering/Resolving]

NARRATIVE: CASE EVENT DATE: 20240408
